FAERS Safety Report 6264800-8 (Version None)
Quarter: 2009Q3

REPORT INFORMATION
  Report Type: 
  Country: None (occurrence: None)
  Receive Date: 20090710
  Receipt Date: 20090703
  Transmission Date: 20100115
  Serious: Yes (Other)
  Sender: FDA-Public Use
  Company Number: JP-B.I. PHARMACEUTICALS,INC./RIDGEFIELD-2009-DE-04531GD

PATIENT
  Age: 50 Year
  Sex: Male

DRUGS (3)
  1. PRAMIPEXOLE DIHYDROCHLORIDE [Suspect]
     Indication: PARKINSON'S DISEASE
     Dosage: 1.5 MG
  2. L-DOPA [Suspect]
     Indication: PARKINSON'S DISEASE
     Dosage: 400 MG
  3. SELEGILINE [Suspect]
     Indication: PARKINSON'S DISEASE
     Dosage: 5 MG

REACTIONS (4)
  - HYPERPHAGIA [None]
  - PATHOLOGICAL GAMBLING [None]
  - SEXUAL ACTIVITY INCREASED [None]
  - THEFT [None]
